FAERS Safety Report 6299552-9 (Version None)
Quarter: 2009Q3

REPORT INFORMATION
  Report Type: 
  Country: None (occurrence: None)
  Receive Date: 20090803
  Receipt Date: 20090716
  Transmission Date: 20100115
  Serious: Yes (Other)
  Sender: FDA-Public Use
  Company Number: ISPH-2009-0013

PATIENT
  Age: 55 Year
  Sex: Female
  Weight: 63.5 kg

DRUGS (3)
  1. AZASITE [Suspect]
     Indication: BLEPHARITIS
     Dosage: 1 GTT, QD, OPHTHALMIC
     Route: 047
     Dates: start: 20090102
  2. DOXYCYCLINE (DOXYCYCLINE HYDROCHLORIDE) [Concomitant]
  3. ACYCLOVIR (ACICLOVIR SODIUM) [Concomitant]

REACTIONS (11)
  - ACCIDENTAL OVERDOSE [None]
  - DEAFNESS [None]
  - DEAFNESS UNILATERAL [None]
  - EAR DISCOMFORT [None]
  - EYE DISCHARGE [None]
  - EYE IRRITATION [None]
  - EYE PAIN [None]
  - HYPOACUSIS [None]
  - LACRIMATION INCREASED [None]
  - MENIERE'S DISEASE [None]
  - TINNITUS [None]
